FAERS Safety Report 5015908-6 (Version None)
Quarter: 2006Q2

REPORT INFORMATION
  Report Type: 
  Country: None (occurrence: None)
  Receive Date: 20060525
  Receipt Date: 20060509
  Transmission Date: 20061013
  Serious: Yes (Life-Threatening, Hospitalization)
  Sender: FDA-Public Use
  Company Number: FR_030302227

PATIENT
  Age: 75 Year
  Sex: Female
  Weight: 60 kg

DRUGS (16)
  1. GEMCITABINE HYDROCHLORIDE (GEMCITABINE HYDROCHLORIDE) VIAL [Suspect]
     Dosage: 1000 MG/M2, OTHER, INTRAVENOUS
     Route: 042
     Dates: start: 20030212
  2. *OXALIPLATIN (*OXALIPLATIN) [Suspect]
     Dosage: 100 MG/M2, OTHER, INTRAVENOUS
     Route: 042
     Dates: start: 20030213
  3. CREON [Concomitant]
  4. VITAMIN D [Concomitant]
  5. OSTRAM (CALCIUM PHOSPHATE) [Concomitant]
  6. ATARAX [Concomitant]
  7. DI-ANTALVIC [Concomitant]
  8. RYTHMOL [Concomitant]
  9. OMEPRAZOLE [Concomitant]
  10. KARDEGIC (ACETYLSALICYLATE LYSINE) [Concomitant]
  11. NEUPOGEN [Concomitant]
  12. CLAFORAN [Concomitant]
  13. CIPROFLOXACIN HCL [Concomitant]
  14. VANCOMYCIN [Concomitant]
  15. XANAX [Concomitant]
  16. POTASSIUM CHLORIDE [Concomitant]

REACTIONS (11)
  - ALANINE AMINOTRANSFERASE INCREASED [None]
  - ASPARTATE AMINOTRANSFERASE INCREASED [None]
  - BLADDER OBSTRUCTION [None]
  - BLOOD CREATINE INCREASED [None]
  - DRUG HYPERSENSITIVITY [None]
  - DRUG INTOLERANCE [None]
  - MYOCARDIAL ISCHAEMIA [None]
  - PLEURAL EFFUSION [None]
  - PNEUMONIA [None]
  - SHOCK [None]
  - VENTRICULAR HYPOKINESIA [None]
